FAERS Safety Report 19164820 (Version 3)
Quarter: 2021Q2

REPORT INFORMATION
  Report Type: Spontaneous
  Country: US (occurrence: US)
  Receive Date: 20210421
  Receipt Date: 20210623
  Transmission Date: 20210717
  Serious: Yes (Other)
  Sender: FDA-Public Use
  Company Number: US-ASTRAZENECA-2021A224711

PATIENT
  Age: 290 Month
  Sex: Female
  Weight: 54.4 kg

DRUGS (4)
  1. FASENRA [Suspect]
     Active Substance: BENRALIZUMAB
     Indication: ASTHMA
     Route: 065
  2. BENADRYL [Concomitant]
     Active Substance: DIPHENHYDRAMINE HYDROCHLORIDE
     Dosage: UNKNOWN
     Route: 065
  3. FASENRA [Suspect]
     Active Substance: BENRALIZUMAB
     Indication: ASTHMA
     Route: 065
     Dates: start: 201907, end: 202103
  4. XYZAL [Concomitant]
     Active Substance: LEVOCETIRIZINE DIHYDROCHLORIDE
     Dosage: UNKNOWN
     Route: 065

REACTIONS (10)
  - Oral pruritus [Not Recovered/Not Resolved]
  - Hypersensitivity [Unknown]
  - Wheezing [Unknown]
  - Facial pain [Unknown]
  - Product dose omission issue [Unknown]
  - Malaise [Not Recovered/Not Resolved]
  - Eye pruritus [Unknown]
  - Lip swelling [Unknown]
  - Pruritus [Not Recovered/Not Resolved]
  - Mast cell activation syndrome [Unknown]

NARRATIVE: CASE EVENT DATE: 202103
